FAERS Safety Report 4321026-2 (Version None)
Quarter: 2004Q1

REPORT INFORMATION
  Report Type: 
  Country: None (occurrence: None)
  Receive Date: 20040322
  Receipt Date: 20040322
  Transmission Date: 20041129
  Serious: Yes (Death, Disabling, Other)
  Sender: FDA-Public Use
  Company Number: None

PATIENT
  Sex: 0

DRUGS (1)
  1. PROPOFOLS EMULSION [Suspect]
     Indication: GENERAL ANAESTHESIA
     Dosage: DAILY IN ORAL SURGERY OFFICES AND HOSPITALS
     Route: 048

REACTIONS (2)
  - ARTERIOSCLEROSIS [None]
  - CEREBROVASCULAR ACCIDENT [None]
